FAERS Safety Report 4467462-5 (Version None)
Quarter: 2004Q4

REPORT INFORMATION
  Report Type: 
  Country: None (occurrence: None)
  Receive Date: 20041006
  Receipt Date: 20041004
  Transmission Date: 20050328
  Serious: Yes (Hospitalization)
  Sender: FDA-Public Use
  Company Number: BR-MERCK-0410BRA00116

PATIENT
  Age: 49 Year
  Sex: Female

DRUGS (3)
  1. PROPATYL NITRATE [Concomitant]
     Route: 065
  2. VIOXX [Suspect]
     Indication: ANGINA PECTORIS
     Route: 065
     Dates: start: 20030801, end: 20040930
  3. VIOXX [Suspect]
     Route: 065
     Dates: start: 20030801, end: 20040930

REACTIONS (1)
  - ANGINA PECTORIS [None]
